FAERS Safety Report 4770617-3 (Version None)
Quarter: 2005Q3

REPORT INFORMATION
  Report Type: 
  Country: None (occurrence: None)
  Receive Date: 20050915
  Receipt Date: 20050214
  Transmission Date: 20060218
  Serious: Yes (Hospitalization, Disabling, Other)
  Sender: FDA-Public Use
  Company Number: US-MERCK-0502USA01885

PATIENT
  Age: 57 Year
  Sex: Female
  Weight: 61 kg

DRUGS (8)
  1. VIOXX [Suspect]
     Indication: ARTHRITIS
     Route: 048
     Dates: start: 20010901, end: 20020701
  2. VIOXX [Suspect]
     Route: 048
     Dates: start: 20020701, end: 20040801
  3. VIOXX [Suspect]
     Indication: BACK PAIN
     Route: 048
     Dates: start: 20010901, end: 20020701
  4. VIOXX [Suspect]
     Route: 048
     Dates: start: 20020701, end: 20040801
  5. PLAVIX [Concomitant]
     Route: 065
  6. LIPITOR [Concomitant]
     Route: 065
  7. NORVASC [Concomitant]
     Route: 065
  8. GLUCOVANCE [Concomitant]
     Route: 065

REACTIONS (10)
  - BACK PAIN [None]
  - CEREBROVASCULAR ACCIDENT [None]
  - CONVULSION [None]
  - EATING DISORDER [None]
  - EMOTIONAL DISTRESS [None]
  - GLAUCOMA [None]
  - HYPOTENSION [None]
  - METASTASES TO SPINE [None]
  - METASTATIC NEOPLASM [None]
  - POLYTRAUMATISM [None]
